FAERS Safety Report 20725034 (Version 2)
Quarter: 2022Q2

REPORT INFORMATION
  Report Type: Spontaneous
  Country: RU (occurrence: RU)
  Receive Date: 20220419
  Receipt Date: 20220506
  Transmission Date: 20220720
  Serious: Yes (Other)
  Sender: FDA-Public Use
  Company Number: RU-ELI_LILLY_AND_COMPANY-RU202204005384

PATIENT
  Age: 42 Year
  Sex: Female
  Weight: 66 kg

DRUGS (3)
  1. ABEMACICLIB [Suspect]
     Active Substance: ABEMACICLIB
     Indication: Breast cancer
     Dosage: 150 MG, BID
     Route: 048
     Dates: start: 20220225, end: 20220321
  2. LIZEGORA [Concomitant]
     Indication: Product used for unknown indication
     Dosage: 3.6 MG, ONE TIME IN 28 DAYS
  3. LETROZOLUM [Concomitant]
     Indication: Product used for unknown indication
     Dosage: 2.5 MG, DAILY

REACTIONS (2)
  - Enanthema [Recovered/Resolved]
  - Psoriasis [Recovering/Resolving]

NARRATIVE: CASE EVENT DATE: 20220321
